FAERS Safety Report 7920938-8 (Version None)
Quarter: 2011Q4

REPORT INFORMATION
  Report Type: 
  Country: None (occurrence: None)
  Receive Date: 20111117
  Receipt Date: 20111110
  Transmission Date: 20120403
  Serious: Yes (Hospitalization)
  Sender: FDA-Public Use
  Company Number: US-ACTELION-A-US2011-56979

PATIENT

DRUGS (2)
  1. EPOPROSTENOL SODIUM [Suspect]
     Indication: PULMONARY ARTERIAL HYPERTENSION
     Dosage: 46 NG/KG, PER MIN
     Route: 042
     Dates: start: 20100603
  2. LETAIRIS [Concomitant]

REACTIONS (1)
  - DEEP VEIN THROMBOSIS [None]
